FAERS Safety Report 6191273-6 (Version None)
Quarter: 2009Q2

REPORT INFORMATION
  Report Type: 
  Country: None (occurrence: None)
  Receive Date: 20090513
  Receipt Date: 20090513
  Transmission Date: 20091009
  Serious: No
  Sender: FDA-Public Use
  Company Number: None

PATIENT
  Age: 54 Year
  Sex: Female
  Weight: 47.6277 kg

DRUGS (1)
  1. CYTOTEC [Suspect]
     Indication: UTERINE CERVIX DILATION PROCEDURE
     Dosage: FOUR 1X VAGINALLY
     Route: 067
     Dates: start: 20090406

REACTIONS (3)
  - CHILLS [None]
  - MUSCLE SPASMS [None]
  - TREMOR [None]
